FAERS Safety Report 20323070 (Version 1)
Quarter: 2022Q1

REPORT INFORMATION
  Report Type: Spontaneous
  Country: US (occurrence: None)
  Receive Date: 20220111
  Receipt Date: 20220111
  Transmission Date: 20220423
  Serious: No
  Sender: FDA-Public Use
  Company Number: 2022A008441

PATIENT
  Sex: Male

DRUGS (1)
  1. TAGRISSO [Suspect]
     Active Substance: OSIMERTINIB
     Dosage: UNKNOWN
     Route: 048
     Dates: start: 2021

REACTIONS (6)
  - Diarrhoea [Recovering/Resolving]
  - Nausea [Recovering/Resolving]
  - Lethargy [Not Recovered/Not Resolved]
  - Pain [Unknown]
  - Decreased appetite [Not Recovered/Not Resolved]
  - Abdominal pain [Unknown]
